FAERS Safety Report 23707505 (Version 1)
Quarter: 2024Q2

REPORT INFORMATION
  Report Type: Spontaneous
  Country: ES (occurrence: ES)
  Receive Date: 20240404
  Receipt Date: 20240404
  Transmission Date: 20240716
  Serious: Yes (Life-Threatening, Hospitalization, Other)
  Sender: FDA-Public Use
  Company Number: ES-MLMSERVICE-20240319-4893897-1

PATIENT
  Age: 18 Year
  Sex: Female

DRUGS (6)
  1. ATROPINE SULFATE [Suspect]
     Active Substance: ATROPINE SULFATE
     Indication: Extrasystoles
     Dates: start: 202305
  2. CLOMIPRAMINE [Concomitant]
     Active Substance: CLOMIPRAMINE
     Indication: Catatonia
     Dosage: (25 + 10) MG A DAY
     Dates: start: 202207
  3. LORAZEPAM [Concomitant]
     Active Substance: LORAZEPAM
     Indication: Obstructive sleep apnoea syndrome
  4. LORAZEPAM [Concomitant]
     Active Substance: LORAZEPAM
     Indication: Obstructive sleep apnoea syndrome
  5. LORAZEPAM [Concomitant]
     Active Substance: LORAZEPAM
     Indication: Obstructive sleep apnoea syndrome
  6. LORAZEPAM [Concomitant]
     Active Substance: LORAZEPAM
     Indication: Obstructive sleep apnoea syndrome
     Dosage: PROGRESSIVE ASCENDING REGIME FROM 2 TO 15?MG/DAY

REACTIONS (1)
  - Stress cardiomyopathy [Recovered/Resolved]
